FAERS Safety Report 10383789 (Version 1)
Quarter: 2014Q1

REPORT INFORMATION
  Report Type: Spontaneous
  Country: US (occurrence: None)
  Receive Date: 20140306
  Receipt Date: 20140306
  Transmission Date: 20141002
  Serious: Yes (Hospitalization)
  Sender: FDA-Public Use
  Company Number: 163-21880-13044433

PATIENT
  Age: 82 Year
  Sex: Female

DRUGS (1)
  1. REVLIMID ( LENALIDOMIDE) ( 5 MILLIGRAM, CAPSULES) [Suspect]
     Indication: PLASMA CELL MYELOMA
     Route: 048
     Dates: start: 200811, end: 2008

REACTIONS (1)
  - Fall [None]
